FAERS Safety Report 15093091 (Version 1)
Quarter: 2018Q2

REPORT INFORMATION
  Report Type: Spontaneous
  Country: DE (occurrence: DE)
  Receive Date: 20180629
  Receipt Date: 20180629
  Transmission Date: 20180711
  Serious: Yes (Hospitalization)
  Sender: FDA-Public Use
  Company Number: DE-TORRENT-00008699

PATIENT
  Age: 44 Year
  Sex: Female

DRUGS (2)
  1. MORPHINE SULFATE. [Suspect]
     Active Substance: MORPHINE SULFATE
     Indication: ABDOMINAL PAIN UPPER
     Dosage: UNKNOWN
     Route: 065
  2. VENLAFAXINE [Suspect]
     Active Substance: VENLAFAXINE HYDROCHLORIDE
     Indication: ABDOMINAL PAIN UPPER
     Dosage: UNKNOWN
     Route: 065

REACTIONS (3)
  - Drug ineffective [Unknown]
  - Abdominal pain upper [Recovering/Resolving]
  - Condition aggravated [Recovering/Resolving]
